FAERS Safety Report 21725887 (Version 1)
Quarter: 2022Q4

REPORT INFORMATION
  Report Type: Spontaneous
  Country: CN (occurrence: CN)
  Receive Date: 20221214
  Receipt Date: 20221214
  Transmission Date: 20230113
  Serious: Yes (Life-Threatening, Other)
  Sender: FDA-Public Use
  Company Number: CN-009507513-2212CHN003996

PATIENT
  Age: 86 Year
  Sex: Female

DRUGS (2)
  1. CILASTATIN SODIUM\IMIPENEM [Suspect]
     Active Substance: CILASTATIN SODIUM\IMIPENEM
     Indication: Pneumonia bacterial
     Dosage: 0.5 G, TID
     Route: 041
     Dates: start: 20221202, end: 20221203
  2. SODIUM CHLORIDE [Concomitant]
     Active Substance: SODIUM CHLORIDE
     Indication: Pneumonia bacterial
     Dosage: 100 ML, TID
     Route: 041
     Dates: start: 20221202, end: 20221203

REACTIONS (5)
  - Dyspnoea [Recovering/Resolving]
  - Chest discomfort [Recovering/Resolving]
  - Laryngeal oedema [Recovering/Resolving]
  - Arrhythmia [Unknown]
  - Dry skin [Unknown]

NARRATIVE: CASE EVENT DATE: 20221203
